FAERS Safety Report 23038411 (Version 1)
Quarter: 2023Q4

REPORT INFORMATION
  Report Type: Spontaneous
  Country: JP (occurrence: JP)
  Receive Date: 20231006
  Receipt Date: 20231006
  Transmission Date: 20240110
  Serious: Yes (Other)
  Sender: FDA-Public Use
  Company Number: JP-AMNEAL PHARMACEUTICALS-2023-AMRX-03382

PATIENT
  Age: 63 Year
  Sex: Female

DRUGS (2)
  1. ALYMSYS [Suspect]
     Active Substance: BEVACIZUMAB-MALY
     Indication: Neoplasm malignant
     Dosage: UNK
     Route: 065
  2. PACLITAXEL [Suspect]
     Active Substance: PACLITAXEL
     Indication: Neoplasm malignant
     Dosage: UNK
     Route: 065

REACTIONS (4)
  - Pneumothorax [Recovering/Resolving]
  - Tumour rupture [Recovering/Resolving]
  - Palpitations [Recovering/Resolving]
  - Malaise [Recovering/Resolving]
